FAERS Safety Report 5669710-2 (Version None)
Quarter: 2008Q1

REPORT INFORMATION
  Report Type: 
  Country: None (occurrence: None)
  Receive Date: 20080317
  Receipt Date: 20080311
  Transmission Date: 20080703
  Serious: Yes (Other)
  Sender: FDA-Public Use
  Company Number: GB-BRISTOL-MYERS SQUIBB COMPANY-14029359

PATIENT
  Age: 64 Year
  Sex: Female
  Weight: 64 kg

DRUGS (2)
  1. SPRYCEL [Suspect]
     Indication: CHRONIC MYELOID LEUKAEMIA
     Dosage: INCREASED TO 100MG/DAY
     Route: 048
     Dates: start: 20061227, end: 20071219
  2. WARFARIN SODIUM [Suspect]

REACTIONS (3)
  - DYSPNOEA [None]
  - PULMONARY EMBOLISM [None]
  - PULMONARY HYPERTENSION [None]
